FAERS Safety Report 8932597 (Version 1)
Quarter: 2012Q4

REPORT INFORMATION
  Report Type: Spontaneous
  Country: HK (occurrence: None)
  Receive Date: 20121119
  Receipt Date: 20121119
  Transmission Date: 20130627
  Serious: Yes (Hospitalization, Other)
  Sender: FDA-Public Use
  Company Number: VAL_00996_2012

PATIENT
  Age: 32 Year
  Sex: Female

DRUGS (6)
  1. BROMOCRIPTINE [Suspect]
  2. BROMOCRIPTINE [Suspect]
  3. BROMOCRIPTINE [Suspect]
     Dosage: QHS (BEFORE GOING TO BE) REGIMEN # 2
  4. BROMOCRIPTINE [Suspect]
     Dosage: QHS (BEFORE GOING TO BE) REGIMEN # 2
  5. ASCORBIC ACID\PHENYLEPHRINE [Suspect]
     Dosage: (2 df ascr/ 2mg chic)/ 150mg para/ 25mg phen/ 150mg sali [Bedtime] Regimen #1), (2 DF, daily (Regimen #2))
  6. CHLORPHENIRAMINE /00072501/ [Concomitant]

REACTIONS (2)
  - Headache [None]
  - Hypertension [None]
